FAERS Safety Report 5572268-X (Version None)
Quarter: 2007Q4

REPORT INFORMATION
  Report Type: 
  Country: None (occurrence: None)
  Receive Date: 20071221
  Receipt Date: 20071210
  Transmission Date: 20080405
  Serious: Yes (Other)
  Sender: FDA-Public Use
  Company Number: US-PFIZER INC-2007104551

PATIENT
  Sex: Male
  Weight: 127.27 kg

DRUGS (2)
  1. DILANTIN [Suspect]
     Indication: EPILEPSY
  2. DILANTIN [Suspect]
     Dosage: TEXT:BID EVERY DAY TDD:700MG

REACTIONS (10)
  - ANTICONVULSANT DRUG LEVEL INCREASED [None]
  - CONVULSION [None]
  - DIZZINESS [None]
  - FEELING ABNORMAL [None]
  - FEELING DRUNK [None]
  - HYPERTENSION [None]
  - LETHARGY [None]
  - NASOPHARYNGITIS [None]
  - WEIGHT DECREASED [None]
  - WEIGHT INCREASED [None]
